FAERS Safety Report 4700148-8 (Version None)
Quarter: 2005Q2

REPORT INFORMATION
  Report Type: 
  Country: None (occurrence: None)
  Receive Date: 20050627
  Receipt Date: 20050613
  Transmission Date: 20051028
  Serious: Yes (Death)
  Sender: FDA-Public Use
  Company Number: US-JNJFOC-20050405840

PATIENT
  Sex: Female
  Weight: 54.43 kg

DRUGS (15)
  1. REMICADE [Suspect]
     Indication: RHEUMATOID ARTHRITIS
     Route: 042
  2. PAXIL [Concomitant]
     Indication: ARTHRITIS
     Route: 049
  3. REGLAN [Concomitant]
     Dosage: 30 MINUTES PRIOR TO MEALS
     Route: 049
  4. PREDNISONE TAB [Concomitant]
     Route: 049
  5. LISINOPRIL [Concomitant]
     Route: 049
  6. AMARYL [Concomitant]
     Route: 049
  7. IRON [Concomitant]
     Route: 049
  8. LASIX [Concomitant]
     Route: 049
  9. AMBIEN [Concomitant]
     Dosage: AT NIGHT
     Route: 049
  10. TYLENOL [Concomitant]
     Route: 049
  11. NUTREN [Concomitant]
  12. METHOTREXATE [Concomitant]
  13. FOLIC ACID [Concomitant]
  14. VIOXX [Concomitant]
     Indication: ARTHRITIS
  15. ALEVE [Concomitant]
     Indication: ARTHRITIS

REACTIONS (3)
  - ANAEMIA [None]
  - DEATH [None]
  - PERICARDITIS RHEUMATIC [None]
